FAERS Safety Report 14752648 (Version 7)
Quarter: 2018Q3

REPORT INFORMATION
  Report Type: Spontaneous
  Country: JP (occurrence: JP)
  Receive Date: 20180412
  Receipt Date: 20180807
  Transmission Date: 20181010
  Serious: Yes (Hospitalization)
  Sender: FDA-Public Use
  Company Number: JP-CELGENEUS-JPN-20180402080

PATIENT
  Age: 75 Year
  Sex: Female
  Weight: 34.8 kg

DRUGS (27)
  1. VENETOCLAX. [Suspect]
     Active Substance: VENETOCLAX
     Indication: HAEMATOLOGICAL MALIGNANCY
     Dosage: 100 MILLIGRAM
     Route: 048
     Dates: start: 20170620, end: 20170620
  2. AMLODIPINE [Concomitant]
     Active Substance: AMLODIPINE BESYLATE
     Indication: HYPERTENSION
     Dosage: 5 MILLIGRAM
     Route: 048
     Dates: start: 20110808
  3. MAGNESIUM OXIDE. [Concomitant]
     Active Substance: MAGNESIUM OXIDE
     Indication: CONSTIPATION PROPHYLAXIS
     Dosage: 1500 MILLIGRAM
     Route: 048
     Dates: start: 20170625
  4. VONOPRAZAN FUMARATE [Concomitant]
     Active Substance: VONOPRAZAN FUMURATE
     Indication: GASTRITIS PROPHYLAXIS
     Dosage: 20 MILLIGRAM
     Route: 048
     Dates: start: 20180207
  5. LEVOFLOXACIN. [Concomitant]
     Active Substance: LEVOFLOXACIN
     Dosage: 500 MILLIGRAM
     Route: 048
     Dates: start: 20180216, end: 20180302
  6. SHAKUYAKUKANZOTA [Concomitant]
     Indication: MUSCLE SPASMS
     Dosage: 2.5 GRAM
     Route: 048
     Dates: start: 20180207
  7. RINGERS LACTATE [Concomitant]
     Active Substance: CALCIUM CHLORIDE\POTASSIUM CHLORIDE\SODIUM LACTATE
     Dosage: 500 MILLILITER
     Route: 041
     Dates: start: 20180401, end: 20180401
  8. VENETOCLAX. [Suspect]
     Active Substance: VENETOCLAX
     Dosage: 400 MILLIGRAM
     Route: 048
     Dates: start: 20170623, end: 20180401
  9. MINODRONIC ACID [Concomitant]
     Active Substance: MINODRONIC ACID
     Indication: OSTEOPOROSIS
     Dosage: 50 MILLIGRAM
     Route: 048
     Dates: start: 20120901
  10. METOCLOPRAMIDE HYDROCHLORIDE. [Concomitant]
     Active Substance: METOCLOPRAMIDE HYDROCHLORIDE
     Indication: PROPHYLAXIS OF NAUSEA AND VOMITING
     Dosage: 5 MILLIGRAM
     Route: 048
     Dates: start: 20170615
  11. BROMFENAC SODIUM [Concomitant]
     Active Substance: BROMFENAC SODIUM
     Indication: CONJUNCTIVITIS ALLERGIC
     Dosage: 2 DROPS
     Route: 047
     Dates: start: 20170720
  12. NORMAL SALINE [Concomitant]
     Active Substance: SODIUM CHLORIDE
     Indication: FLUID REPLACEMENT
  13. CARBOCISTEINE [Concomitant]
     Active Substance: CARBOCYSTEINE
     Indication: PHARYNGITIS
     Dosage: 4500 MILLIGRAM
     Route: 048
     Dates: start: 20170909, end: 20170913
  14. VENETOCLAX. [Suspect]
     Active Substance: VENETOCLAX
     Dosage: 200 MILLIGRAM
     Route: 048
     Dates: start: 20170622, end: 20170622
  15. POLAPREZINIC [Concomitant]
     Indication: PROPHYLAXIS AGAINST GASTROINTESTINAL ULCER
     Dosage: 150 MILLIGRAM
     Route: 048
     Dates: start: 20110808
  16. OLOPATADINE HYDROCHLORIDE. [Concomitant]
     Active Substance: OLOPATADINE HYDROCHLORIDE
     Indication: CONJUNCTIVITIS ALLERGIC
     Dosage: 3 DROPS
     Route: 047
     Dates: start: 20170415
  17. VENETOCLAX. [Suspect]
     Active Substance: VENETOCLAX
     Dosage: 400 MILLIGRAM
     Route: 048
     Dates: start: 20180514
  18. LEVOFLOXACIN. [Concomitant]
     Active Substance: LEVOFLOXACIN
     Indication: INFECTION PROPHYLAXIS
     Dosage: 500 MILLIGRAM
     Route: 048
     Dates: start: 20170625, end: 20170919
  19. CLOSTRIDIUM BUTYRICUM [Concomitant]
     Active Substance: CLOSTRIDIUM BUTYRICUM SPORES STRAIN M-55
     Indication: FUNCTIONAL GASTROINTESTINAL DISORDER
     Dosage: 6 TABLET
     Route: 048
     Dates: start: 20180404
  20. HYALURONATE SODIUM [Concomitant]
     Active Substance: HYALURONATE SODIUM
     Indication: DRY EYE
     Dosage: 1 DROPS
     Route: 047
     Dates: start: 20170415
  21. SUCRALFATE. [Concomitant]
     Active Substance: SUCRALFATE
     Indication: GASTRITIS
     Dosage: 1 GRAM
     Route: 048
     Dates: start: 20180207, end: 20180207
  22. ALFACALCIDOL [Concomitant]
     Active Substance: ALFACALCIDOL
     Indication: OSTEOPOROSIS
     Dosage: 1 MICROGRAM
     Route: 048
     Dates: start: 20120901
  23. SODIUM GUALENATE HYDRATE [Concomitant]
     Active Substance: SODIUM GUALENATE MONOHYDRATE
     Indication: INFECTION PROPHYLAXIS
     Dosage: OPTIMAL DOSE
     Route: 065
     Dates: start: 20170604
  24. MOMETASONE FUROATE. [Concomitant]
     Active Substance: MOMETASONE FUROATE
     Indication: RHINITIS ALLERGIC
     Dosage: 200 MICROGRAM
     Route: 045
     Dates: start: 20171227
  25. NORMAL SALINE [Concomitant]
     Active Substance: SODIUM CHLORIDE
     Indication: PROPHYLAXIS
     Dosage: .9 PERCENT
     Route: 065
     Dates: start: 20170618, end: 20170628
  26. VIDAZA [Suspect]
     Active Substance: AZACITIDINE
     Indication: HAEMATOLOGICAL MALIGNANCY
     Dosage: 75 MILLIGRAM/SQ. METER
     Route: 041
     Dates: start: 20170619
  27. RINGERS LACTATE [Concomitant]
     Active Substance: CALCIUM CHLORIDE\POTASSIUM CHLORIDE\SODIUM LACTATE
     Indication: FLUID REPLACEMENT
     Dosage: 1000 MILLILITER
     Route: 041
     Dates: start: 20180210, end: 20180210

REACTIONS (2)
  - Gastritis [Recovered/Resolved]
  - Gastritis [Recovered/Resolved]

NARRATIVE: CASE EVENT DATE: 20180401
